FAERS Safety Report 6759565-7 (Version None)
Quarter: 2010Q2

REPORT INFORMATION
  Report Type: 
  Country: None (occurrence: None)
  Receive Date: 20100607
  Receipt Date: 20100531
  Transmission Date: 20101027
  Serious: Yes (Other)
  Sender: FDA-Public Use
  Company Number: CH-BRISTOL-MYERS SQUIBB COMPANY-15133952

PATIENT
  Age: 53 Year
  Sex: Male

DRUGS (2)
  1. TAXOL [Suspect]
     Indication: LUNG SQUAMOUS CELL CARCINOMA STAGE UNSPECIFIED
     Dosage: CYCLE 1: TAXOL-138MG;CARBOPLATIN-600MG CYCLE 2: TAXOL-160MG;CARBOPLATIN-600MG
     Route: 042
  2. CARBOPLATIN [Suspect]
     Indication: LUNG SQUAMOUS CELL CARCINOMA STAGE UNSPECIFIED
     Dosage: CYCLE 1: TAXOL-138MG;CARBOPLATIN-600MG CYCLE 2: TAXOL-160MG;CARBOPLATIN-600MG
     Route: 042

REACTIONS (1)
  - PRIAPISM [None]
